FAERS Safety Report 5348531-4 (Version None)
Quarter: 2007Q2

REPORT INFORMATION
  Report Type: 
  Country: None (occurrence: None)
  Receive Date: 20070605
  Receipt Date: 20070525
  Transmission Date: 20071010
  Serious: Yes (Hospitalization, Disabling)
  Sender: FDA-Public Use
  Company Number: WAES0704GBR00032

PATIENT
  Age: 72 Year
  Sex: Male

DRUGS (14)
  1. COZAAR [Suspect]
     Indication: CARDIAC FAILURE CONGESTIVE
     Dosage: PO
     Route: 048
     Dates: start: 20031003, end: 20070322
  2. COZAAR [Suspect]
     Indication: CARDIAC FAILURE CONGESTIVE
     Dosage: PO
     Route: 048
     Dates: start: 20070324
  3. ACETAMINOPHEN [Concomitant]
  4. ALBUTEROL [Concomitant]
  5. AMOXICILLIN [Concomitant]
  6. ASPIRIN [Concomitant]
  7. BECLOMETHASONE DIPROPIONATE [Concomitant]
  8. ESOMEPRAZOLE MAGNESIUM [Concomitant]
  9. FERROUSSO4 [Concomitant]
  10. FUROSEMIDE [Concomitant]
  11. ISOSORBIDE MONONITRATE [Concomitant]
  12. NITROGLYCERIN [Concomitant]
  13. SIMVASTATIN [Concomitant]
  14. SPIRONOLACTONE [Concomitant]

REACTIONS (9)
  - DILATATION VENTRICULAR [None]
  - DIZZINESS [None]
  - DYSPNOEA [None]
  - HEADACHE [None]
  - LEFT ATRIAL DILATATION [None]
  - LOSS OF CONSCIOUSNESS [None]
  - SCAR [None]
  - VENTRICULAR DYSFUNCTION [None]
  - VENTRICULAR TACHYCARDIA [None]
